FAERS Safety Report 17374767 (Version 3)
Quarter: 2020Q2

REPORT INFORMATION
  Report Type: Spontaneous
  Country: US (occurrence: US)
  Receive Date: 20200205
  Receipt Date: 20200401
  Transmission Date: 20200713
  Serious: No
  Sender: FDA-Public Use
  Company Number: US-PFIZER INC-2020047952

PATIENT
  Age: 90 Year
  Sex: Female
  Weight: 67.13 kg

DRUGS (13)
  1. NAMENDA [Concomitant]
     Active Substance: MEMANTINE HYDROCHLORIDE
     Indication: DEMENTIA
     Dosage: 32 MG, 1X/DAY (32 MG CAPSULE, ONCE DAILY, AT DINNERTIME)
     Route: 048
     Dates: start: 2012
  2. POTASSIUM CHLORIDE. [Concomitant]
     Active Substance: POTASSIUM CHLORIDE
     Indication: ELECTROLYTE SUBSTITUTION THERAPY
     Dosage: 10 MG, 1X/DAY [10 MG TABLET, ONCE DAILY]
     Route: 048
     Dates: start: 20190617
  3. GABAPENTIN. [Concomitant]
     Active Substance: GABAPENTIN
     Indication: NERVE INJURY
  4. METOPROLOL. [Concomitant]
     Active Substance: METOPROLOL
     Indication: SYNCOPE
     Dosage: 20 MG, 1X/DAY [20MG TABLET, ONCE DAILY]
     Route: 048
     Dates: start: 1990
  5. BUMETANIDE. [Concomitant]
     Active Substance: BUMETANIDE
     Indication: CARDIAC FAILURE CONGESTIVE
     Dosage: 0.5 MG, 1X/DAY (IN THE MORNING)
     Route: 048
     Dates: start: 20190617
  6. GABAPENTIN. [Concomitant]
     Active Substance: GABAPENTIN
     Indication: NEURALGIA
     Dosage: 300 MG, 3X/DAY [300 MG CAPSULE, THREE TIMES DAILY]
     Route: 048
     Dates: start: 2015
  7. TIZANIDINE. [Concomitant]
     Active Substance: TIZANIDINE
     Indication: NEURALGIA
     Dosage: 2 MG, 3X/DAY
     Route: 048
     Dates: start: 2015
  8. TIZANIDINE. [Concomitant]
     Active Substance: TIZANIDINE
     Indication: NERVE INJURY
  9. WARFARIN [Concomitant]
     Active Substance: WARFARIN
     Indication: THROMBOSIS
     Dosage: 2 MG, ONCE DAILY FOR 5 DAYS A WEEK; 1 MG, ONCE DAILY FOR 2 DAYS A WEEK
     Route: 048
     Dates: start: 1980
  10. ARICEPT [Concomitant]
     Active Substance: DONEPEZIL HYDROCHLORIDE
     Indication: DEMENTIA
     Dosage: 10 MG, 1X/DAY [10 MG TABLET, ONCE DAILY]
     Route: 048
     Dates: start: 2012
  11. METOPROLOL. [Concomitant]
     Active Substance: METOPROLOL
     Indication: BLOOD PRESSURE ABNORMAL
  12. VYNDAQEL [Suspect]
     Active Substance: TAFAMIDIS MEGLUMINE
     Indication: CARDIAC FAILURE CONGESTIVE
     Dosage: 80 MG (4 CAPSULES), 1X/DAY
     Route: 048
     Dates: start: 202001
  13. LOVASTATIN. [Concomitant]
     Active Substance: LOVASTATIN
     Indication: SYNCOPE
     Dosage: 25 MG, 1X/DAY
     Route: 048
     Dates: start: 1980

REACTIONS (4)
  - Off label use [Unknown]
  - Nightmare [Recovered/Resolved]
  - Diarrhoea [Unknown]
  - Product use in unapproved indication [Unknown]

NARRATIVE: CASE EVENT DATE: 202001
